FAERS Safety Report 8054076-3 (Version None)
Quarter: 2012Q1

REPORT INFORMATION
  Report Type: 
  Country: None (occurrence: None)
  Receive Date: 20120118
  Receipt Date: 20120112
  Transmission Date: 20120608
  Serious: Yes (Other)
  Sender: FDA-Public Use
  Company Number: US-CELGENEUS-163-50794-12011368

PATIENT
  Sex: Female

DRUGS (4)
  1. PLERIXAFOR [Suspect]
     Dosage: 400 MICROGRAM/KILOGRAM
     Route: 058
     Dates: start: 20111205, end: 20111209
  2. NEUPOGEN [Suspect]
     Route: 065
  3. VIDAZA [Suspect]
     Dosage: 75 MILLIGRAM/SQ. METER
     Route: 058
     Dates: start: 20111031, end: 20111104
  4. ASPIRIN [Concomitant]
     Route: 065

REACTIONS (1)
  - THROMBOCYTOSIS [None]
